FAERS Safety Report 10344010 (Version 2)
Quarter: 2014Q3

REPORT INFORMATION
  Report Type: Spontaneous
  Country: US (occurrence: US)
  Receive Date: 20140728
  Receipt Date: 20140728
  Transmission Date: 20150326
  Serious: Yes (Disabling, Other)
  Sender: FDA-Public Use
  Company Number: US-ROCHE-1348331

PATIENT
  Age: 77 Year
  Sex: Male

DRUGS (2)
  1. LUCENTIS [Suspect]
     Active Substance: RANIBIZUMAB
     Route: 065
     Dates: start: 2012
  2. LUCENTIS [Suspect]
     Active Substance: RANIBIZUMAB
     Indication: AGE-RELATED MACULAR DEGENERATION
     Route: 050
     Dates: start: 20140130

REACTIONS (6)
  - Endophthalmitis [Unknown]
  - Retinal detachment [Unknown]
  - Blindness [Not Recovered/Not Resolved]
  - Visual acuity reduced [Unknown]
  - Retinopathy proliferative [Unknown]
  - Pain [Unknown]

NARRATIVE: CASE EVENT DATE: 20140201
